FAERS Safety Report 9320161 (Version 1)
Quarter: 2013Q2

REPORT INFORMATION
  Report Type: Spontaneous
  Country: US (occurrence: US)
  Receive Date: 20130530
  Receipt Date: 20130530
  Transmission Date: 20140414
  Serious: No
  Sender: FDA-Public Use
  Company Number: US-ASTRAZENECA-2013SE35257

PATIENT
  Age: 16856 Day
  Sex: Male

DRUGS (1)
  1. ZOMIG ZMT [Suspect]
     Indication: MIGRAINE
     Dosage: 1 TABLET ON TONGUE AT ONSET OF MIGRAINE, MAY REPEAT IN 2 HOURS IF NEEDED, MAXIMUM 2 IN 24 HR
     Route: 048
     Dates: start: 201208

REACTIONS (1)
  - Nasopharyngitis [Unknown]
